FAERS Safety Report 4934071-0 (Version None)
Quarter: 2006Q1

REPORT INFORMATION
  Report Type: 
  Country: None (occurrence: None)
  Receive Date: 20060303
  Receipt Date: 20060223
  Transmission Date: 20060701
  Serious: Yes (Hospitalization)
  Sender: FDA-Public Use
  Company Number: 222480

PATIENT
  Age: 55 Year
  Sex: Male
  Weight: 65.8 kg

DRUGS (5)
  1. AVASTIN [Suspect]
     Indication: COLORECTAL CANCER METASTATIC
     Dosage: 476 MG
     Dates: start: 20060202
  2. IRINOTECAN HCL [Suspect]
     Indication: COLORECTAL CANCER METASTATIC
     Dosage: 420 MG
     Dates: start: 20060202
  3. CAPECITABINE (CAPECITABINE) [Suspect]
     Indication: COLORECTAL CANCER METASTATIC
     Dosage: 3000 MG
  4. ALOXI (PALONOSETRON) [Concomitant]
  5. DECADRON [Concomitant]

REACTIONS (1)
  - HELICOBACTER GASTRITIS [None]
